FAERS Safety Report 7407049-5 (Version None)
Quarter: 2011Q2

REPORT INFORMATION
  Report Type: 
  Country: None (occurrence: None)
  Receive Date: 20110411
  Receipt Date: 20110401
  Transmission Date: 20111010
  Serious: Yes (Hospitalization, Other)
  Sender: FDA-Public Use
  Company Number: US-ROCHE-552264

PATIENT
  Sex: Male
  Weight: 79.4 kg

DRUGS (1)
  1. ACCUTANE [Suspect]
     Route: 065
     Dates: start: 19930503, end: 19930920

REACTIONS (9)
  - PERITONITIS [None]
  - CROHN'S DISEASE [None]
  - DEPRESSION [None]
  - COLITIS ULCERATIVE [None]
  - SOCIAL PHOBIA [None]
  - INFLAMMATORY BOWEL DISEASE [None]
  - COLITIS [None]
  - INTESTINAL PERFORATION [None]
  - CATARACT [None]
